FAERS Safety Report 25236692 (Version 1)
Quarter: 2025Q2

REPORT INFORMATION
  Report Type: Spontaneous
  Country: US (occurrence: US)
  Receive Date: 20250424
  Receipt Date: 20250424
  Transmission Date: 20250717
  Serious: Yes (Other)
  Sender: PIERRE FABRE MEDICAMENT
  Company Number: US-MLMSERVICE-20250410-PI475617-00274-1

PATIENT
  Age: 3 Week
  Sex: Female

DRUGS (6)
  1. PROPRANOLOL [Suspect]
     Active Substance: PROPRANOLOL HYDROCHLORIDE
     Indication: PHACES syndrome
     Route: 065
  2. PROPRANOLOL [Suspect]
     Active Substance: PROPRANOLOL HYDROCHLORIDE
     Indication: Infantile haemangioma
     Route: 065
  3. ATENOLOL [Suspect]
     Active Substance: ATENOLOL
     Indication: PHACES syndrome
     Dosage: 0.5 MG/KG, QD (1/DAY)
     Route: 065
  4. ATENOLOL [Suspect]
     Active Substance: ATENOLOL
     Indication: Infantile haemangioma
  5. TRIAMCINOLONE [Suspect]
     Active Substance: TRIAMCINOLONE
     Indication: PHACES syndrome
  6. TRIAMCINOLONE [Suspect]
     Active Substance: TRIAMCINOLONE
     Indication: Infantile haemangioma

REACTIONS (8)
  - Bradycardia [Unknown]
  - Seizure [Unknown]
  - Cerebral venous thrombosis [Unknown]
  - Developmental delay [Unknown]
  - Therapy partial responder [Unknown]
  - Treatment noncompliance [Unknown]
  - Product administered to patient of inappropriate age [Unknown]
  - Off label use [Unknown]
